FAERS Safety Report 20999230 (Version 1)
Quarter: 2022Q2

REPORT INFORMATION
  Report Type: Spontaneous
  Country: JP (occurrence: JP)
  Receive Date: 20220623
  Receipt Date: 20220623
  Transmission Date: 20220721
  Serious: Yes (Disabling)
  Sender: FDA-Public Use
  Company Number: JP-teijin-202200928_FET_P_1

PATIENT
  Age: 61 Year
  Sex: Male

DRUGS (15)
  1. FEBUXOSTAT [Suspect]
     Active Substance: FEBUXOSTAT
     Indication: Product used for unknown indication
     Dosage: 20 MILLIGRAM, BID
     Route: 048
     Dates: end: 20220105
  2. FEBUXOSTAT [Suspect]
     Active Substance: FEBUXOSTAT
     Dosage: 10 MILLIGRAM, BID
     Route: 048
     Dates: start: 20220106, end: 20220406
  3. FEBUXOSTAT [Suspect]
     Active Substance: FEBUXOSTAT
     Dosage: 10 MILLIGRAM, QD
     Route: 048
     Dates: start: 20220407
  4. OMEGA-3-ACID ETHYL ESTERS [Concomitant]
     Active Substance: OMEGA-3-ACID ETHYL ESTERS
     Indication: Hyperlipidaemia
     Dosage: 2 GRAM, QD
     Route: 048
  5. CARVEDILOL [Concomitant]
     Active Substance: CARVEDILOL
     Indication: Angina pectoris
     Dosage: 2.5 MILLIGRAM, BID
     Route: 048
  6. ASPIRIN [Concomitant]
     Active Substance: ASPIRIN
     Indication: Angina pectoris
     Dosage: 100 MILLIGRAM, QD
     Route: 048
  7. RABEPRAZOLE SODIUM [Concomitant]
     Active Substance: RABEPRAZOLE SODIUM
     Indication: Gastrointestinal disorder prophylaxis
     Dosage: 10 MILLIGRAM, QD
     Route: 048
  8. METFORMIN HYDROCHLORIDE [Concomitant]
     Active Substance: METFORMIN HYDROCHLORIDE
     Indication: Diabetes mellitus
     Dosage: 500 MILLIGRAM, BID
     Route: 048
  9. DILTIAZEM HYDROCHLORIDE [Concomitant]
     Active Substance: DILTIAZEM HYDROCHLORIDE
     Indication: Angina pectoris
     Dosage: 100 MILLIGRAM, BID
     Route: 048
  10. TADALAFIL [Concomitant]
     Active Substance: TADALAFIL
     Indication: Benign prostatic hyperplasia
     Dosage: 5 MILLIGRAM, QD
     Route: 048
  11. BROTIZOLAM [Concomitant]
     Active Substance: BROTIZOLAM
     Indication: Insomnia
     Dosage: 0.25 MILLIGRAM, QD
     Route: 048
  12. RAMOSETRON HYDROCHLORIDE [Concomitant]
     Active Substance: RAMOSETRON HYDROCHLORIDE
     Indication: Irritable bowel syndrome
     Dosage: 5 MICROGRAM, QD
     Route: 048
  13. CARBOCYSTEINE [Concomitant]
     Active Substance: CARBOCYSTEINE
     Indication: Asthma
     Dosage: 500 MILLIGRAM, BID
     Route: 048
  14. TRULICITY [Concomitant]
     Active Substance: DULAGLUTIDE
     Indication: Diabetes mellitus
     Dosage: 0.75 MILLIGRAM, 1/WEEK
     Route: 058
  15. ETHYL LOFLAZEPATE [Concomitant]
     Active Substance: ETHYL LOFLAZEPATE
     Indication: Insomnia
     Dosage: 1 MILLIGRAM, QD
     Route: 048

REACTIONS (2)
  - Abulia [Not Recovered/Not Resolved]
  - Irritability [Not Recovered/Not Resolved]

NARRATIVE: CASE EVENT DATE: 20220401
